FAERS Safety Report 7940407-9 (Version None)
Quarter: 2011Q4

REPORT INFORMATION
  Report Type: 
  Country: None (occurrence: None)
  Receive Date: 20111127
  Receipt Date: 20111117
  Transmission Date: 20120403
  Serious: Yes (Death, Hospitalization, Other)
  Sender: FDA-Public Use
  Company Number: US-ELI_LILLY_AND_COMPANY-US201106005656

PATIENT
  Sex: Female

DRUGS (14)
  1. AMBIEN [Concomitant]
  2. TENORMIN [Concomitant]
  3. LORTAB [Concomitant]
  4. MICARDIS [Concomitant]
  5. LYRICA [Concomitant]
  6. ZOCOR [Concomitant]
  7. AMARYL [Concomitant]
  8. FORTEO [Suspect]
     Indication: OSTEOPOROSIS
     Dosage: UNK
     Route: 058
     Dates: start: 20100701, end: 20101231
  9. XANAX [Concomitant]
  10. POTASSIUM CHLORIDE [Concomitant]
  11. CYMBALTA [Concomitant]
  12. LASIX [Concomitant]
  13. PRILOSEC [Concomitant]
  14. SOMA [Concomitant]

REACTIONS (20)
  - UROSEPSIS [None]
  - CELLULITIS [None]
  - INTERVERTEBRAL DISC DEGENERATION [None]
  - MALNUTRITION [None]
  - DEFORMITY [None]
  - TRANSMISSION OF AN INFECTIOUS AGENT VIA A MEDICINAL PRODUCT [None]
  - ANXIETY [None]
  - GENERAL PHYSICAL CONDITION ABNORMAL [None]
  - EMOTIONAL DISTRESS [None]
  - FEAR [None]
  - PAIN [None]
  - SEPSIS [None]
  - ABDOMINAL INJURY [None]
  - SKIN NECROSIS [None]
  - DEVICE FAILURE [None]
  - SOFT TISSUE DISORDER [None]
  - NEURALGIA [None]
  - DRY GANGRENE [None]
  - FAT NECROSIS [None]
  - DEHYDRATION [None]
